FAERS Safety Report 19310238 (Version 2)
Quarter: 2021Q2

REPORT INFORMATION
  Report Type: Report from Study
  Country: BR (occurrence: BR)
  Receive Date: 20210526
  Receipt Date: 20210601
  Transmission Date: 20210717
  Serious: Yes (Death, Hospitalization, Other)
  Sender: FDA-Public Use
  Company Number: NVSC2021BR115610

PATIENT
  Age: 16 Year
  Sex: Female
  Weight: 70 kg

DRUGS (2)
  1. HYDROXYUREA. [Concomitant]
     Active Substance: HYDROXYUREA
     Indication: SICKLE CELL DISEASE
     Dosage: 1000 MG, QD
     Route: 065
     Dates: start: 20200909, end: 20210516
  2. CRIZANLIZUMAB [Suspect]
     Active Substance: CRIZANLIZUMAB
     Indication: SICKLE CELL DISEASE
     Dosage: 350 MG (EV INFUSION)
     Route: 041
     Dates: start: 20210405, end: 20210419

REACTIONS (14)
  - Pain in extremity [Fatal]
  - Cardio-respiratory arrest [Fatal]
  - Septic shock [Unknown]
  - Lung consolidation [Unknown]
  - Sickle cell anaemia with crisis [Fatal]
  - Back pain [Fatal]
  - Rhinitis [Unknown]
  - Purulent discharge [Unknown]
  - Headache [Fatal]
  - Dengue virus test positive [Unknown]
  - Pain [Fatal]
  - Pulmonary oedema [Unknown]
  - Depressed level of consciousness [Unknown]
  - Acute kidney injury [Unknown]

NARRATIVE: CASE EVENT DATE: 20210511
